FAERS Safety Report 9171680 (Version 1)
Quarter: 2013Q1

REPORT INFORMATION
  Report Type: Spontaneous
  Country: PR (occurrence: PR)
  Receive Date: 20130319
  Receipt Date: 20130319
  Transmission Date: 20140127
  Serious: Yes (Other)
  Sender: FDA-Public Use
  Company Number: PR-NICOBRDEVP-2013-03908

PATIENT
  Age: 47 Year
  Sex: Male

DRUGS (1)
  1. GABAPENTIN (WATSON LABORATORIES) [Suspect]
     Indication: PRODUCT USED FOR UNKNOWN INDICATION
     Dosage: 600 MG, UNK
     Route: 048

REACTIONS (6)
  - Convulsion [Unknown]
  - Amnesia [Unknown]
  - Inappropriate schedule of drug administration [Unknown]
  - Abnormal behaviour [Unknown]
  - Somnambulism [Unknown]
  - Disorientation [Unknown]
